FAERS Safety Report 16067399 (Version 2)
Quarter: 2019Q1

REPORT INFORMATION
  Report Type: Spontaneous
  Country: US (occurrence: US)
  Receive Date: 20190313
  Receipt Date: 20190319
  Transmission Date: 20190418
  Serious: Yes (Other)
  Sender: FDA-Public Use
  Company Number: US-GLAXOSMITHKLINE-US2019041492

PATIENT
  Sex: Male

DRUGS (7)
  1. POLIOMYELITIS VACCINE NOS [Suspect]
     Active Substance: POLIOMYELITIS VACCINE
     Indication: PROPHYLAXIS
  2. QVAR [Suspect]
     Active Substance: BECLOMETHASONE DIPROPIONATE
  3. PEDIARIX [Suspect]
     Active Substance: DIPHTHERIA AND TETANUS TOXOIDS AND ACELLULAR PERTUSSIS AND HEPATITIS B AND INACTIVATED POLIOVIRUS VACCINE COMBINED
     Indication: PROPHYLAXIS
     Dates: start: 201308, end: 201308
  4. ALBUTEROL. [Suspect]
     Active Substance: ALBUTEROL
     Indication: DYSPNOEA
  5. HIV VACCINE [Suspect]
     Active Substance: INVESTIGATIONAL PRODUCT
     Indication: PROPHYLAXIS
  6. VENTOLIN HFA [Suspect]
     Active Substance: ALBUTEROL SULFATE
     Indication: ASTHMA
  7. ROBITUSSIN (DEXTROMETHORPHAN) [Suspect]
     Active Substance: DEXTROMETHORPHAN
     Indication: PROPHYLAXIS

REACTIONS (12)
  - Dental caries [Not Recovered/Not Resolved]
  - Dyspnoea [Not Recovered/Not Resolved]
  - Screaming [Recovered/Resolved]
  - Bowel movement irregularity [Recovered/Resolved]
  - Mass [Recovered/Resolved]
  - Seizure [Recovered/Resolved]
  - Choking [Recovered/Resolved]
  - Tremor [Recovered/Resolved]
  - Asthma [Not Recovered/Not Resolved]
  - Respiratory disorder [Not Recovered/Not Resolved]
  - Crying [Recovered/Resolved]
  - Eye movement disorder [Recovered/Resolved]
